FAERS Safety Report 23617950 (Version 1)
Quarter: 2024Q1

REPORT INFORMATION
  Report Type: Report from Study
  Country: US (occurrence: US)
  Receive Date: 20240311
  Receipt Date: 20240311
  Transmission Date: 20240410
  Serious: No
  Sender: FDA-Public Use
  Company Number: US-ALXN-202403USA000080US

PATIENT
  Sex: Female

DRUGS (2)
  1. ULTOMIRIS [Suspect]
     Active Substance: RAVULIZUMAB-CWVZ
     Indication: Myasthenia gravis
     Dosage: UNK
     Route: 065
  2. VYVGART [Suspect]
     Active Substance: EFGARTIGIMOD ALFA-FCAB
     Indication: Product used for unknown indication
     Dosage: UNK
     Route: 065

REACTIONS (8)
  - Gait disturbance [Unknown]
  - Fall [Unknown]
  - Dropped head syndrome [Unknown]
  - Dysarthria [Unknown]
  - Dysphagia [Unknown]
  - Irritability [Unknown]
  - Personality disorder [Unknown]
  - Therapy non-responder [Unknown]
